FAERS Safety Report 19064838 (Version 2)
Quarter: 2021Q2

REPORT INFORMATION
  Report Type: Spontaneous
  Country: US (occurrence: US)
  Receive Date: 20210326
  Receipt Date: 20210407
  Transmission Date: 20210717
  Serious: Yes (Other)
  Sender: FDA-Public Use
  Company Number: US-ORGANON-2010USA006422

PATIENT
  Age: 35 Year
  Sex: Female

DRUGS (1)
  1. NEXPLANON [Suspect]
     Active Substance: ETONOGESTREL
     Indication: SKIN INFECTION
     Dosage: 1 ROD IMPLANT IN LEFT ARM (ROUTE ALSO REPORTED AS ORAL?CONFLICTING INFORMATION)
     Route: 059
     Dates: start: 20200717, end: 20201013

REACTIONS (4)
  - Skin infection [Recovering/Resolving]
  - Device related infection [Unknown]
  - Product use in unapproved indication [Unknown]
  - Device expulsion [Recovered/Resolved]

NARRATIVE: CASE EVENT DATE: 2020
